FAERS Safety Report 8210963-4 (Version None)
Quarter: 2012Q1

REPORT INFORMATION
  Report Type: 
  Country: None (occurrence: None)
  Receive Date: 20120315
  Receipt Date: 20120309
  Transmission Date: 20120608
  Serious: Yes (Other)
  Sender: FDA-Public Use
  Company Number: JP-JNJFOC-20120301207

PATIENT
  Age: 80 Year
  Sex: Female

DRUGS (5)
  1. AGENTS FOR PEPTIC ULCER [Concomitant]
     Indication: PEPTIC ULCER
     Route: 065
  2. ALL OTHER THERAPEUTIC DRUGS [Concomitant]
     Route: 065
  3. GALANTAMINE HYDROBROMIDE [Suspect]
     Indication: DEMENTIA ALZHEIMER'S TYPE
     Route: 048
     Dates: start: 20120101, end: 20120201
  4. STEROIDS NOS [Concomitant]
     Indication: MULTIPLE SCLEROSIS
     Route: 065
     Dates: start: 20120101
  5. PREDNISOLONE [Concomitant]
     Route: 065

REACTIONS (1)
  - LIVER DISORDER [None]
